FAERS Safety Report 20795739 (Version 4)
Quarter: 2022Q3

REPORT INFORMATION
  Report Type: Spontaneous
  Country: US (occurrence: US)
  Receive Date: 20220506
  Receipt Date: 20220722
  Transmission Date: 20221027
  Serious: Yes (Death, Other)
  Sender: FDA-Public Use
  Company Number: US-TEVA-2022-US-2034702

PATIENT
  Age: 55 Year
  Sex: Female
  Weight: 81.6 kg

DRUGS (16)
  1. HYDROCHLOROTHIAZIDE\VALSARTAN [Suspect]
     Active Substance: HYDROCHLOROTHIAZIDE\VALSARTAN
     Indication: Hypertension
     Dosage: VALSARTAN 160 MG /HYDROCHLOROTHIAZIDE 12.5 MG
     Route: 065
     Dates: start: 20141113, end: 20170116
  2. HYDROCHLOROTHIAZIDE\VALSARTAN [Suspect]
     Active Substance: HYDROCHLOROTHIAZIDE\VALSARTAN
     Dosage: VALSARTAN 160 MG /HYDROCHLOROTHIAZIDE 12.5 MG
     Route: 065
     Dates: start: 20141113, end: 20170116
  3. HYDROCHLOROTHIAZIDE\VALSARTAN [Suspect]
     Active Substance: HYDROCHLOROTHIAZIDE\VALSARTAN
     Dosage: VALSARTAN 160 MG /HYDROCHLOROTHIAZIDE 12.5 MG
     Route: 065
     Dates: start: 20141113, end: 20170116
  4. HYDROCHLOROTHIAZIDE\VALSARTAN [Suspect]
     Active Substance: HYDROCHLOROTHIAZIDE\VALSARTAN
     Dosage: VALSARTAN 160 MG /HYDROCHLOROTHIAZIDE 12.5 MG
     Route: 065
     Dates: start: 20141113, end: 20170116
  5. HYDROCHLOROTHIAZIDE\VALSARTAN [Suspect]
     Active Substance: HYDROCHLOROTHIAZIDE\VALSARTAN
     Dosage: VALSARTAN 160 MG /HYDROCHLOROTHIAZIDE 12.5 MG
     Route: 065
     Dates: start: 20141113, end: 20170116
  6. HYDROCHLOROTHIAZIDE\VALSARTAN [Suspect]
     Active Substance: HYDROCHLOROTHIAZIDE\VALSARTAN
     Dosage: VALSARTAN 160 MG /HYDROCHLOROTHIAZIDE 12.5 MG
     Route: 065
     Dates: start: 20141113, end: 20170116
  7. HYDROCHLOROTHIAZIDE\VALSARTAN [Suspect]
     Active Substance: HYDROCHLOROTHIAZIDE\VALSARTAN
     Indication: Hypertension
     Dosage: VALSARTAN 160 MG/HYDROCHLOROTHIAZIDE 12.5 MG
     Route: 065
     Dates: start: 20170918, end: 20171018
  8. HYDROCHLOROTHIAZIDE\VALSARTAN [Suspect]
     Active Substance: HYDROCHLOROTHIAZIDE\VALSARTAN
     Dosage: VALSARTAN 320 MG/HYDROCHLOROTHIAZIDE 12.5 MG
     Route: 065
     Dates: start: 20171117, end: 20171221
  9. HYDROCHLOROTHIAZIDE\VALSARTAN [Suspect]
     Active Substance: HYDROCHLOROTHIAZIDE\VALSARTAN
     Indication: Hypertension
     Dosage: VALSARTAN 160 MG/HYDROCHLOROTHIAZIDE 12.5 MG
     Route: 065
     Dates: start: 20160419, end: 20170225
  10. HYDROCHLOROTHIAZIDE\VALSARTAN [Suspect]
     Active Substance: HYDROCHLOROTHIAZIDE\VALSARTAN
     Indication: Hypertension
     Dosage: VALSARTAN 320 MG/HYDROCHLOROTHIAZIDE 12.5 MG
     Route: 065
     Dates: start: 20180806, end: 20190102
  11. MILK OF MAGNESIA [Concomitant]
     Active Substance: MAGNESIUM HYDROXIDE
     Indication: Constipation
     Route: 065
  12. MILK OF MAGNESIA [Concomitant]
     Active Substance: MAGNESIUM HYDROXIDE
     Indication: Intestinal obstruction
  13. ROLAIDS [Concomitant]
     Active Substance: CALCIUM CARBONATE\MAGNESIUM HYDROXIDE
     Indication: Dyspepsia
     Route: 065
  14. TUMS [Concomitant]
     Active Substance: CALCIUM CARBONATE
     Indication: Dyspepsia
     Route: 065
  15. Potassium Chloride C [Concomitant]
     Indication: Product used for unknown indication
     Route: 065
  16. HYOSCYAMINE [Concomitant]
     Active Substance: HYOSCYAMINE
     Indication: Product used for unknown indication
     Route: 065

REACTIONS (11)
  - Pancreatic carcinoma [Fatal]
  - Pancreatic failure [Unknown]
  - Cancer pain [Unknown]
  - Fatigue [Unknown]
  - Abdominal pain [Not Recovered/Not Resolved]
  - Weight decreased [Unknown]
  - Carbohydrate antigen 19-9 increased [Unknown]
  - Oedema peripheral [Unknown]
  - Abdominal distension [Unknown]
  - Diarrhoea [Unknown]
  - Malabsorption [Unknown]

NARRATIVE: CASE EVENT DATE: 20200201
